FAERS Safety Report 24614190 (Version 1)
Quarter: 2024Q4

REPORT INFORMATION
  Report Type: Spontaneous
  Country: US (occurrence: US)
  Receive Date: 20241113
  Receipt Date: 20241113
  Transmission Date: 20250114
  Serious: Yes (Other)
  Sender: BRISTOL-MYERS SQUIBB COMPANY
  Company Number: US-BRISTOL-MYERS SQUIBB COMPANY-2024-175184

PATIENT
  Age: 84 Year
  Sex: Male
  Weight: 107 kg

DRUGS (1)
  1. ELIQUIS [Suspect]
     Active Substance: APIXABAN
     Indication: Atrial fibrillation
     Route: 048
     Dates: start: 20160428

REACTIONS (6)
  - Cardiac amyloidosis [Unknown]
  - Heart failure with preserved ejection fraction [Unknown]
  - Cardiac valve disease [Unknown]
  - Ischaemic cardiomyopathy [Unknown]
  - Aortic valve stenosis [Unknown]
  - Bundle branch block right [Unknown]
